FAERS Safety Report 15526479 (Version 2)
Quarter: 2018Q4

REPORT INFORMATION
  Report Type: Spontaneous
  Country: FR (occurrence: FR)
  Receive Date: 20181018
  Receipt Date: 20181029
  Transmission Date: 20190205
  Serious: Yes (Hospitalization)
  Sender: FDA-Public Use
  Company Number: FR-PFIZER INC-2018413805

PATIENT
  Age: 65 Year
  Sex: Female
  Weight: 69.8 kg

DRUGS (4)
  1. ESIDREX [Suspect]
     Active Substance: HYDROCHLOROTHIAZIDE
     Indication: HYPERTENSION
     Dosage: 50 MG, ONCE A DAY
     Route: 048
     Dates: start: 20180801, end: 20180816
  2. KARDEGIC [Suspect]
     Active Substance: ASPIRIN DL-LYSINE
     Dosage: UNK
     Dates: start: 20180730, end: 201808
  3. ATORVASTATIN CALCIUM. [Suspect]
     Active Substance: ATORVASTATIN CALCIUM
     Indication: DYSLIPIDAEMIA
     Dosage: 80 MG, ONCE A DAY
     Route: 048
     Dates: start: 20180801, end: 20180816
  4. LOVENOX [Concomitant]
     Active Substance: ENOXAPARIN SODIUM
     Dosage: UNK
     Route: 058
     Dates: start: 20180731

REACTIONS (5)
  - Cholestasis [Recovering/Resolving]
  - Drug reaction with eosinophilia and systemic symptoms [Recovering/Resolving]
  - Rash maculo-papular [Recovering/Resolving]
  - Eosinophilia [Recovering/Resolving]
  - Hepatocellular injury [Recovering/Resolving]

NARRATIVE: CASE EVENT DATE: 20180814
